FAERS Safety Report 7536509-1 (Version None)
Quarter: 2011Q2

REPORT INFORMATION
  Report Type: 
  Country: None (occurrence: None)
  Receive Date: 20110524
  Receipt Date: 20110317
  Transmission Date: 20111010
  Serious: Yes (Other)
  Sender: FDA-Public Use
  Company Number: 026646

PATIENT
  Sex: Female

DRUGS (1)
  1. CIMZIA [Suspect]
     Indication: CROHN'S DISEASE
     Dosage: (SUBCUTANEOUS) ; (400 MG 1X/2 WEEKS, UPPED THE DOSE SUBCUTANEOUS)
     Route: 058
     Dates: start: 20100730

REACTIONS (10)
  - HYPERSOMNIA [None]
  - HAEMATOCHEZIA [None]
  - FEELING ABNORMAL [None]
  - NIGHT SWEATS [None]
  - DRUG INEFFECTIVE [None]
  - CHOLECYSTECTOMY [None]
  - WEIGHT DECREASED [None]
  - ABDOMINAL PAIN [None]
  - IMPAIRED WORK ABILITY [None]
  - PUS IN STOOL [None]
